FAERS Safety Report 16788898 (Version 2)
Quarter: 2019Q3

REPORT INFORMATION
  Report Type: Report from Study
  Country: US (occurrence: US)
  Receive Date: 20190910
  Receipt Date: 20190927
  Transmission Date: 20191005
  Serious: Yes (Death)
  Sender: FDA-Public Use
  Company Number: US-ROCHE-2402896

PATIENT
  Age: 73 Year
  Sex: Male
  Weight: 78 kg

DRUGS (2)
  1. GUADECITABINE [Suspect]
     Active Substance: GUADECITABINE
     Indication: TRANSITIONAL CELL CARCINOMA METASTATIC
     Route: 042
     Dates: start: 20190520, end: 20190610
  2. ATEZOLIZUMAB. [Suspect]
     Active Substance: ATEZOLIZUMAB
     Indication: TRANSITIONAL CELL CARCINOMA METASTATIC
     Route: 058
     Dates: start: 20190520, end: 20190524

REACTIONS (1)
  - Disease progression [Fatal]

NARRATIVE: CASE EVENT DATE: 20190826
